FAERS Safety Report 4542102-5 (Version None)
Quarter: 2004Q4

REPORT INFORMATION
  Report Type: 
  Country: None (occurrence: None)
  Receive Date: 20041230
  Receipt Date: 20041123
  Transmission Date: 20050328
  Serious: Yes (Life-Threatening, Hospitalization, Disabling)
  Sender: FDA-Public Use
  Company Number: US-MERCK-0411USA03832

PATIENT
  Age: 54 Year
  Sex: Female

DRUGS (13)
  1. VIOXX [Suspect]
     Indication: ARTHRITIS
     Route: 048
     Dates: start: 20010101, end: 20030402
  2. VIOXX [Suspect]
     Indication: ARTHRALGIA
     Route: 048
     Dates: start: 20010101, end: 20030402
  3. GLUCOPHAGE [Concomitant]
     Route: 065
  4. LISINOPRIL-BC [Concomitant]
     Route: 065
  5. GLYBURIDE [Concomitant]
     Route: 065
  6. PROVERA [Concomitant]
     Route: 065
     Dates: end: 20030130
  7. PREMARIN [Concomitant]
     Route: 065
     Dates: end: 20030130
  8. SALSALATE [Concomitant]
     Indication: ARTHRALGIA
     Route: 065
     Dates: start: 20030402, end: 20030428
  9. DICLOFENAC [Concomitant]
     Indication: ARTHRALGIA
     Route: 065
     Dates: start: 20030428, end: 20030513
  10. DICLOFENAC [Concomitant]
     Route: 065
     Dates: start: 20030519, end: 20030611
  11. ACETAMINOPHEN [Concomitant]
     Indication: ARTHRALGIA
     Route: 065
     Dates: start: 20030428, end: 20030513
  12. ACETAMINOPHEN [Concomitant]
     Route: 065
     Dates: start: 20030519, end: 20030611
  13. VICODIN [Concomitant]
     Route: 065
     Dates: start: 20030513, end: 20030519

REACTIONS (6)
  - ARTHRITIS BACTERIAL [None]
  - ARTHROPATHY [None]
  - DRUG INEFFECTIVE [None]
  - PULMONARY EMBOLISM [None]
  - STOMACH DISCOMFORT [None]
  - TREATMENT NONCOMPLIANCE [None]
